FAERS Safety Report 25647084 (Version 1)
Quarter: 2025Q3

REPORT INFORMATION
  Report Type: Spontaneous
  Country: US (occurrence: US)
  Receive Date: 20250806
  Receipt Date: 20250806
  Transmission Date: 20251020
  Serious: No
  Sender: ALEXION PHARMACEUTICALS
  Company Number: US-AstraZeneca-CH-00923537A

PATIENT
  Sex: Male
  Weight: 77.11 kg

DRUGS (1)
  1. BREZTRI [Suspect]
     Active Substance: BUDESONIDE\FORMOTEROL\GLYCOPYRROLATE
     Indication: Chronic obstructive pulmonary disease
     Dosage: 4.8 MILLIGRAM, Q12H
     Dates: start: 20250503

REACTIONS (1)
  - Muscle spasms [Not Recovered/Not Resolved]
